FAERS Safety Report 9412062 (Version 1)
Quarter: 2013Q3

REPORT INFORMATION
  Report Type: Spontaneous
  Country: US (occurrence: None)
  Receive Date: 20130719
  Receipt Date: 20130719
  Transmission Date: 20140515
  Serious: Yes (Other)
  Sender: FDA-Public Use
  Company Number: None

PATIENT
  Age: 23 Year
  Sex: Male
  Weight: 69.85 kg

DRUGS (1)
  1. ROZEREM [Suspect]
     Indication: INSOMNIA
     Dosage: A FEW DAYS
     Route: 048
     Dates: start: 20130304, end: 20130405

REACTIONS (5)
  - Hypogonadism [None]
  - Erectile dysfunction [None]
  - Asthenia [None]
  - Loss of libido [None]
  - Organic erectile dysfunction [None]
